FAERS Safety Report 11230386 (Version 1)
Quarter: 2015Q2

REPORT INFORMATION
  Report Type: Spontaneous
  Country: US (occurrence: None)
  Receive Date: 20150629
  Receipt Date: 20150629
  Transmission Date: 20150821
  Serious: Yes (Hospitalization)
  Sender: FDA-Public Use
  Company Number: US-H14001-15-00971

PATIENT
  Age: 35 Year
  Sex: Female

DRUGS (1)
  1. LITHIUM (LITHIUM CARBONATE) (UNKNOWN) (LITHIUM CARBONATE) [Suspect]
     Active Substance: LITHIUM CARBONATE
     Indication: BIPOLAR DISORDER

REACTIONS (18)
  - Oxygen saturation decreased [None]
  - Troponin increased [None]
  - Hypokinesia [None]
  - Mental status changes [None]
  - Respiratory failure [None]
  - Electrocardiogram T wave inversion [None]
  - Respiratory rate decreased [None]
  - Metabolic acidosis [None]
  - Antipsychotic drug level increased [None]
  - Left ventricular dysfunction [None]
  - Haemodialysis [None]
  - Bradycardia [None]
  - General physical health deterioration [None]
  - Electrocardiogram QT prolonged [None]
  - Unresponsive to stimuli [None]
  - Nodal rhythm [None]
  - Hypoxia [None]
  - Hypotension [None]
